FAERS Safety Report 6569666-4 (Version None)
Quarter: 2010Q1

REPORT INFORMATION
  Report Type: 
  Country: None (occurrence: None)
  Receive Date: 20100204
  Receipt Date: 20100121
  Transmission Date: 20100710
  Serious: Yes (Other)
  Sender: FDA-Public Use
  Company Number: PHHY2010BE03469

PATIENT
  Age: 8 Year
  Sex: Female

DRUGS (1)
  1. RITALIN [Suspect]
     Indication: ATTENTION DEFICIT/HYPERACTIVITY DISORDER
     Dosage: 10 MG DAILY
     Route: 048
     Dates: start: 20080301

REACTIONS (2)
  - CYSTITIS NONINFECTIVE [None]
  - URINARY TRACT INFLAMMATION [None]
